FAERS Safety Report 9659497 (Version 1)
Quarter: 2013Q4

REPORT INFORMATION
  Report Type: Report from Study
  Country: NL (occurrence: NL)
  Receive Date: 20131031
  Receipt Date: 20131031
  Transmission Date: 20140711
  Serious: Yes (Death)
  Sender: FDA-Public Use
  Company Number: PHHY2013NL122999

PATIENT
  Sex: Female

DRUGS (3)
  1. ACLASTA [Suspect]
     Indication: OSTEOPOROSIS
     Dosage: ONCE EVERY 52 WEEKS
     Route: 042
     Dates: start: 20101115
  2. ACLASTA [Suspect]
     Dosage: ONCE EVERY 52 WEEKS
     Route: 042
     Dates: start: 20111114
  3. ACLASTA [Suspect]
     Dosage: ONCE EVERY 52 WEEKS
     Route: 042
     Dates: start: 20121115

REACTIONS (2)
  - Death [Fatal]
  - Incorrect dose administered [Unknown]
